FAERS Safety Report 19330122 (Version 1)
Quarter: 2021Q2

REPORT INFORMATION
  Report Type: Other
  Country: US (occurrence: US)
  Receive Date: 20210528
  Receipt Date: 20210528
  Transmission Date: 20210717
  Serious: Yes (Other)
  Sender: FDA-Public Use
  Company Number: US-DEXPHARM-20210717

PATIENT
  Sex: Female

DRUGS (4)
  1. NIVOLUMAB [Suspect]
     Active Substance: NIVOLUMAB
     Indication: SMALL CELL LUNG CANCER
  2. NITROFURANTOIN. [Interacting]
     Active Substance: NITROFURANTOIN
  3. CIPROFLOXACIN. [Interacting]
     Active Substance: CIPROFLOXACIN
  4. OMEPRAZOLE. [Interacting]
     Active Substance: OMEPRAZOLE

REACTIONS (2)
  - Drug interaction [Unknown]
  - Subacute cutaneous lupus erythematosus [Recovered/Resolved]
